FAERS Safety Report 13301828 (Version 1)
Quarter: 2017Q1

REPORT INFORMATION
  Report Type: Spontaneous
  Country: GB (occurrence: GB)
  Receive Date: 20170307
  Receipt Date: 20170307
  Transmission Date: 20170428
  Serious: Yes (Disabling, Other)
  Sender: FDA-Public Use
  Company Number: GB-TEVA-744879ACC

PATIENT
  Age: 64 Year
  Sex: Female
  Weight: 70 kg

DRUGS (12)
  1. CREON [Concomitant]
     Active Substance: PANCRELIPASE AMYLASE\PANCRELIPASE LIPASE\PANCRELIPASE PROTEASE
  2. MIRTAZAPINE. [Concomitant]
     Active Substance: MIRTAZAPINE
  3. SINEMET CR [Concomitant]
     Active Substance: CARBIDOPA\LEVODOPA
  4. DEXAMETHASONE. [Concomitant]
     Active Substance: DEXAMETHASONE
  5. ZOPICLONE [Concomitant]
     Active Substance: ZOPICLONE
  6. VENLAFAXINE [Suspect]
     Active Substance: VENLAFAXINE HYDROCHLORIDE
     Indication: ANTIDEPRESSANT THERAPY
     Route: 048
     Dates: start: 20170209, end: 20170211
  7. LOPERAMIDE [Concomitant]
     Active Substance: LOPERAMIDE
  8. CAPECITABINE. [Concomitant]
     Active Substance: CAPECITABINE
  9. ORAMORPH [Concomitant]
     Active Substance: MORPHINE SULFATE
  10. LANSOPRAZOLE. [Concomitant]
     Active Substance: LANSOPRAZOLE
  11. PREGABALIN. [Concomitant]
     Active Substance: PREGABALIN
  12. ZOMORPH [Concomitant]
     Active Substance: MORPHINE SULFATE

REACTIONS (3)
  - Mental impairment [Recovering/Resolving]
  - Mobility decreased [Recovering/Resolving]
  - Parkinson^s disease [Recovered/Resolved]

NARRATIVE: CASE EVENT DATE: 20170210
